FAERS Safety Report 9110698 (Version 1)
Quarter: 2013Q1

REPORT INFORMATION
  Report Type: Spontaneous
  Country: US (occurrence: US)
  Receive Date: 20130219
  Receipt Date: 20130219
  Transmission Date: 20140127
  Serious: No
  Sender: FDA-Public Use
  Company Number: US-BRISTOL-MYERS SQUIBB COMPANY-16753741

PATIENT
  Age: 64 Year
  Sex: Female
  Weight: 79.36 kg

DRUGS (14)
  1. ORENCIA [Suspect]
     Indication: RHEUMATOID ARTHRITIS
     Dosage: FOR MORE THAN A YEAR,1DF= 125MG/ML PREFILLED SYRINGE 4PACK
     Route: 058
  2. ABATACEPT SUBQ INJECTION 125MG/ML [Suspect]
     Indication: RHEUMATOID ARTHRITIS
     Dosage: 125MG/1 ML PFS 4 PACK
     Route: 058
  3. NEXIUM [Concomitant]
     Dosage: CAP
  4. AMBIEN [Concomitant]
     Dosage: TAB
  5. LIPITOR [Concomitant]
     Dosage: TAB
  6. ARAVA [Concomitant]
     Dosage: TAB
  7. PREDNISONE [Concomitant]
     Dosage: TAB
  8. PLAQUENIL [Concomitant]
     Dosage: TAB
  9. PAXIL [Concomitant]
     Dosage: TAB
  10. ALEVE [Concomitant]
  11. ASPIRIN [Concomitant]
     Dosage: CHW
  12. CALCIUM [Concomitant]
     Dosage: 1 DF = 500 UNS,TAB
  13. VITAMIN C [Concomitant]
     Dosage: CAP
  14. MULTIVITAMIN [Concomitant]
     Dosage: CAP

REACTIONS (4)
  - Pain [Unknown]
  - Rheumatoid arthritis [Unknown]
  - Anaemia [Unknown]
  - Drug ineffective [Unknown]
